FAERS Safety Report 9303848 (Version 1)
Quarter: 2013Q2

REPORT INFORMATION
  Report Type: Spontaneous
  Country: US (occurrence: None)
  Receive Date: 20130521
  Receipt Date: 20130521
  Transmission Date: 20140414
  Serious: Yes (Life-Threatening)
  Sender: FDA-Public Use
  Company Number: None

PATIENT
  Age: 68 Year
  Sex: Male
  Weight: 89.6 kg

DRUGS (2)
  1. MIDAZOLAM [Suspect]
     Route: 042
     Dates: start: 20130326, end: 20130326
  2. PROPOFOL [Suspect]
     Route: 042
     Dates: start: 20130326, end: 20130326

REACTIONS (1)
  - Cardiac arrest [None]
